FAERS Safety Report 18305280 (Version 3)
Quarter: 2022Q2

REPORT INFORMATION
  Report Type: Spontaneous
  Country: US (occurrence: US)
  Receive Date: 20200924
  Receipt Date: 20220407
  Transmission Date: 20220721
  Serious: Yes (Hospitalization, Other)
  Sender: FDA-Public Use
  Company Number: US-GLAXOSMITHKLINE-US2020GSK190092

PATIENT
  Sex: Female

DRUGS (3)
  1. ZANTAC [Suspect]
     Active Substance: RANITIDINE HYDROCHLORIDE
     Indication: Product used for unknown indication
     Dosage: UNK
     Route: 065
  2. ZANTAC [Suspect]
     Active Substance: RANITIDINE HYDROCHLORIDE
     Indication: Product used for unknown indication
     Dosage: UNK, WE (3 TIMES PER WEEK)
     Route: 065
  3. ZANTAC [Suspect]
     Active Substance: RANITIDINE HYDROCHLORIDE
     Indication: Dyspepsia
     Dosage: 10 ML, BID (AS NEEDED)
     Route: 048
     Dates: start: 20180225, end: 20190516

REACTIONS (14)
  - Gastric neoplasm [Unknown]
  - Carcinoid tumour of the stomach [Unknown]
  - Gastric cancer [Unknown]
  - Gastric cancer stage I [Unknown]
  - Stomach mass [Unknown]
  - Gastric polyps [Unknown]
  - Gastrointestinal neoplasm [Unknown]
  - Chronic gastritis [Unknown]
  - Benign gastric neoplasm [Unknown]
  - Abdominal pain [Unknown]
  - Hypergastrinaemia [Unknown]
  - Epigastric discomfort [Unknown]
  - Abdominal pain upper [Unknown]
  - Intestinal metaplasia [Unknown]
